FAERS Safety Report 9812698 (Version 3)
Quarter: 2014Q2

REPORT INFORMATION
  Report Type: Spontaneous
  Country: DE (occurrence: DE)
  Receive Date: 20140113
  Receipt Date: 20140408
  Transmission Date: 20141212
  Serious: Yes (Other)
  Sender: FDA-Public Use
  Company Number: DE-JNJFOC-20140105171

PATIENT
  Age: 32 Year
  Sex: Female

DRUGS (3)
  1. XEPLION [Suspect]
     Indication: SCHIZOPHRENIA, PARANOID TYPE
     Route: 030
     Dates: start: 20140129
  2. XEPLION [Suspect]
     Indication: SCHIZOPHRENIA, PARANOID TYPE
     Route: 030
     Dates: start: 20130305, end: 20140129
  3. BISOPROLOL [Concomitant]
     Route: 065

REACTIONS (1)
  - Liver function test abnormal [Not Recovered/Not Resolved]
